FAERS Safety Report 8283529-8 (Version None)
Quarter: 2012Q1

REPORT INFORMATION
  Report Type: 
  Country: None (occurrence: None)
  Receive Date: 20120316
  Receipt Date: 20100809
  Transmission Date: 20120608
  Serious: Yes (Other)
  Sender: FDA-Public Use
  Company Number: PHEH2008US04375

PATIENT
  Age: 84 Year
  Sex: Female
  Weight: 59.9 kg

DRUGS (11)
  1. BYSTOLIC [Suspect]
     Dosage: 10 MG, BID, ORAL
     Route: 048
     Dates: start: 20080403
  2. VASOTEC [Suspect]
     Dosage: 20, BID
  3. TEKTURNA [Suspect]
     Indication: BLOOD PRESSURE INADEQUATELY CONTROLLED
     Dosage: 150;300 MG, QD, BID
     Dates: start: 20080403
  4. TEKTURNA [Suspect]
     Indication: BLOOD PRESSURE INADEQUATELY CONTROLLED
     Dosage: 150;300 MG, QD, BID
     Dates: start: 20080430
  5. DIOVAN [Suspect]
     Indication: HYPERTENSION
     Dosage: 160;320;80 MG, BID
     Dates: end: 20080403
  6. DIOVAN [Suspect]
     Indication: HYPERTENSION
     Dosage: 160;320;80 MG, BID
     Dates: start: 20080403
  7. LASIX [Suspect]
     Dosage: 20 MG, QD
  8. ATENOLOL [Suspect]
     Dosage: 25 MG
     Dates: end: 20080403
  9. VIOXX [Concomitant]
  10. METOPROLOL TARTRATE [Concomitant]
  11. HYDROCHLOROTHIAZIDE [Concomitant]

REACTIONS (6)
  - FLATULENCE [None]
  - POLLAKIURIA [None]
  - ALOPECIA [None]
  - BLOOD PRESSURE INADEQUATELY CONTROLLED [None]
  - OEDEMA PERIPHERAL [None]
  - URINE OUTPUT INCREASED [None]
